FAERS Safety Report 7607311-7 (Version None)
Quarter: 2011Q3

REPORT INFORMATION
  Report Type: 
  Country: None (occurrence: None)
  Receive Date: 20110712
  Receipt Date: 20110712
  Transmission Date: 20111222
  Serious: Yes (Life-Threatening, Hospitalization)
  Sender: FDA-Public Use
  Company Number: None

PATIENT
  Age: 69 Year
  Sex: Male
  Weight: 113.3993 kg

DRUGS (12)
  1. TORSEMIDE [Concomitant]
  2. METOPROLOL TARTRATE [Concomitant]
  3. SIMVASTATIN [Concomitant]
  4. SYNTHROID [Concomitant]
  5. ENTERIC ASA [Concomitant]
  6. CYANOCOBALAMIN [Concomitant]
  7. VICTOZA [Concomitant]
  8. CILOSTAZOL [Concomitant]
  9. ULORIC [Concomitant]
  10. ADVAIR DISKUS 100/50 [Concomitant]
  11. VENTOLIN HFA [Concomitant]
  12. PRADAXA [Suspect]
     Indication: ATRIAL FIBRILLATION
     Dosage: BID
     Dates: start: 20110615, end: 20110618

REACTIONS (6)
  - COAGULOPATHY [None]
  - METABOLIC ACIDOSIS [None]
  - RENAL FAILURE ACUTE [None]
  - ANAEMIA [None]
  - HYPERKALAEMIA [None]
  - ARRHYTHMIA [None]
